FAERS Safety Report 5208544-X (Version None)
Quarter: 2007Q1

REPORT INFORMATION
  Report Type: 
  Country: None (occurrence: None)
  Receive Date: 20070115
  Receipt Date: 20070111
  Transmission Date: 20070707
  Serious: Yes (Hospitalization)
  Sender: FDA-Public Use
  Company Number: GB-BOEHRINGER INGELHEIM PHARMACEUTICALS, INC.-2007-UK-00130UK

PATIENT
  Age: 78 Year
  Sex: Male

DRUGS (11)
  1. SPIRIVA [Suspect]
     Indication: EMPHYSEMA
     Route: 055
     Dates: start: 20061219, end: 20061227
  2. ASPIRIN [Concomitant]
     Dosage: 75MG DAILY
     Route: 048
  3. BECLOMETHASONE DIPROPIONATE [Concomitant]
  4. DIPYRIDAMOLE [Concomitant]
     Route: 048
  5. LACTULOSE [Concomitant]
     Dosage: 10MG TWICE DAILY
  6. MOVICOL [Concomitant]
  7. NICORDANDIL [Concomitant]
     Dosage: 10MG TWICE DAILY
     Route: 048
  8. PERINDOPRIL ERBUMINE [Concomitant]
  9. SALBUTAMOL [Concomitant]
     Route: 055
  10. SENNA [Concomitant]
     Route: 048
  11. CHLORAMPHENICOL [Concomitant]
     Indication: HYPERSENSITIVITY

REACTIONS (4)
  - APHONIA [None]
  - DYSPHAGIA [None]
  - DYSPHONIA [None]
  - PHARYNGOLARYNGEAL PAIN [None]
